FAERS Safety Report 8690776 (Version 3)
Quarter: 2013Q4

REPORT INFORMATION
  Report Type: Spontaneous
  Country: US (occurrence: US)
  Receive Date: 20120728
  Receipt Date: 20131101
  Transmission Date: 20140711
  Serious: No
  Sender: FDA-Public Use
  Company Number: US-009507513-2012SP034381

PATIENT
  Age: 10 Year
  Sex: Male
  Weight: 24.36 kg

DRUGS (4)
  1. CLARITIN ORAL SOLUTION [Suspect]
     Indication: SEASONAL ALLERGY
     Dosage: UNK UNK, QD
     Route: 048
     Dates: start: 2007
  2. CLARITIN ORAL SOLUTION [Suspect]
     Indication: MEDICAL OBSERVATION
  3. FLOVENT [Concomitant]
     Indication: ASTHMA
     Dosage: UNK, UNKNOWN
  4. ALBUTEROL [Concomitant]
     Indication: ASTHMA
     Dosage: UNK, UNKNOWN

REACTIONS (1)
  - Dysgeusia [Recovered/Resolved]
